FAERS Safety Report 13383155 (Version 1)
Quarter: 2017Q1

REPORT INFORMATION
  Report Type: Spontaneous
  Country: US (occurrence: US)
  Receive Date: 20170329
  Receipt Date: 20170329
  Transmission Date: 20170429
  Serious: No
  Sender: FDA-Public Use
  Company Number: US-ASTRAZENECA-2017SE31986

PATIENT
  Sex: Male
  Weight: 108.9 kg

DRUGS (2)
  1. BYDUREON [Suspect]
     Active Substance: EXENATIDE
     Indication: TYPE 2 DIABETES MELLITUS
     Route: 058
     Dates: start: 201604
  2. BYDUREON [Suspect]
     Active Substance: EXENATIDE
     Indication: DIABETIC NEUROPATHY
     Route: 058
     Dates: start: 201604

REACTIONS (5)
  - Injection site swelling [Unknown]
  - Product use issue [Unknown]
  - Off label use [Unknown]
  - Injection site pain [Unknown]
  - Injection site mass [Unknown]
